FAERS Safety Report 10758425 (Version 1)
Quarter: 2015Q1

REPORT INFORMATION
  Report Type: Spontaneous
  Country: US (occurrence: None)
  Receive Date: 20150202
  Receipt Date: 20150202
  Transmission Date: 20150721
  Serious: No
  Sender: FDA-Public Use
  Company Number: None

PATIENT
  Age: 51 Year
  Sex: Male
  Weight: 124.5 kg

DRUGS (2)
  1. FENTANYL. [Suspect]
     Active Substance: FENTANYL
     Dosage: OTHER
     Route: 042
     Dates: start: 20110103, end: 20110103
  2. MIDAZOLAM [Suspect]
     Active Substance: MIDAZOLAM\MIDAZOLAM HYDROCHLORIDE
     Route: 042
     Dates: start: 20110103, end: 20110103

REACTIONS (5)
  - Oxygen saturation decreased [None]
  - Inappropriate schedule of drug administration [None]
  - Respiratory depression [None]
  - Depressed level of consciousness [None]
  - Hypoxia [None]

NARRATIVE: CASE EVENT DATE: 20110103
